FAERS Safety Report 7235552-X (Version None)
Quarter: 2011Q1

REPORT INFORMATION
  Report Type: 
  Country: None (occurrence: None)
  Receive Date: 20110120
  Receipt Date: 20110110
  Transmission Date: 20110831
  Serious: Yes (Other)
  Sender: FDA-Public Use
  Company Number: PHHY2011US01989

PATIENT
  Sex: Female

DRUGS (9)
  1. VERAPAMIL [Concomitant]
     Dosage: 120 MG, UNK
  2. FUROSEMIDE [Concomitant]
     Dosage: 40 MG, UNK
  3. ADVAIR [Concomitant]
     Dosage: 250 MG, UNK
  4. RITANA [Concomitant]
     Dosage: 25 MG, UNK
  5. SINGULAIR [Concomitant]
     Dosage: 10 MG, UNK
  6. HUMALOG [Concomitant]
     Dosage: UNK
  7. TEKTURNA [Suspect]
     Indication: HYPERTENSION
     Dosage: 300 MG, QD
     Route: 048
  8. METFORMIN [Concomitant]
     Dosage: UNK
  9. LISINOPRIL [Concomitant]
     Dosage: 40 MG, UNK

REACTIONS (2)
  - ASTHMA [None]
  - DIARRHOEA [None]
